FAERS Safety Report 19889645 (Version 1)
Quarter: 2021Q3

REPORT INFORMATION
  Report Type: Report from Study
  Country: FR (occurrence: FR)
  Receive Date: 20210927
  Receipt Date: 20210927
  Transmission Date: 20211014
  Serious: Yes (Hospitalization)
  Sender: FDA-Public Use
  Company Number: FR-TAKEDA-FR201939744

PATIENT
  Age: 4 Year
  Sex: Male
  Weight: 13 kg

DRUGS (14)
  1. VENOFER [Concomitant]
     Active Substance: IRON SUCROSE
     Indication: ANAEMIA PROPHYLAXIS
  2. TEDUGLUTIDE [Suspect]
     Active Substance: TEDUGLUTIDE
     Dosage: 0.80 MILLIGRAM, QD
     Route: 065
     Dates: start: 20200828
  3. URSOFALK [Concomitant]
     Active Substance: URSODIOL
  4. TEDUGLUTIDE [Suspect]
     Active Substance: TEDUGLUTIDE
     Indication: SHORT-BOWEL SYNDROME
     Dosage: 0.65 MILLIGRAM (0.05 MILLIGRAM/KILOGRAM DAILY DOSE), 7 DOSES PER WEEK
     Route: 065
     Dates: start: 20190521, end: 20200828
  5. EMLA [Concomitant]
     Active Substance: LIDOCAINE\PRILOCAINE
     Indication: LOCAL ANAESTHESIA
  6. UVESTEROL VITAMINE A D E C [Concomitant]
  7. INNOHEP [Concomitant]
     Active Substance: TINZAPARIN SODIUM
     Indication: ANTICOAGULANT THERAPY
  8. TEDUGLUTIDE [Suspect]
     Active Substance: TEDUGLUTIDE
     Indication: SHORT-BOWEL SYNDROME
     Dosage: 0.65 MILLIGRAM (0.05 MILLIGRAM/KILOGRAM DAILY DOSE), 7 DOSES PER WEEK
     Route: 065
     Dates: start: 20190521, end: 20200828
  9. TEDUGLUTIDE [Suspect]
     Active Substance: TEDUGLUTIDE
     Indication: SHORT-BOWEL SYNDROME
     Dosage: 0.65 MILLIGRAM (0.05 MILLIGRAM/KILOGRAM DAILY DOSE), 7 DOSES PER WEEK
     Route: 065
     Dates: start: 20190521, end: 20200828
  10. FERROSTRANE [Concomitant]
     Active Substance: SODIUM FEREDETATE
     Indication: MINERAL SUPPLEMENTATION
  11. TEDUGLUTIDE [Suspect]
     Active Substance: TEDUGLUTIDE
     Indication: SHORT-BOWEL SYNDROME
     Dosage: 0.65 MILLIGRAM (0.05 MILLIGRAM/KILOGRAM DAILY DOSE), 7 DOSES PER WEEK
     Route: 065
     Dates: start: 20190521, end: 20200828
  12. TEDUGLUTIDE [Suspect]
     Active Substance: TEDUGLUTIDE
     Dosage: 0.80 MILLIGRAM, QD
     Route: 065
     Dates: start: 20200828
  13. TEDUGLUTIDE [Suspect]
     Active Substance: TEDUGLUTIDE
     Dosage: 0.80 MILLIGRAM, QD
     Route: 065
     Dates: start: 20200828
  14. TEDUGLUTIDE [Suspect]
     Active Substance: TEDUGLUTIDE
     Dosage: 0.80 MILLIGRAM, QD
     Route: 065
     Dates: start: 20200828

REACTIONS (1)
  - Pyrexia [Recovered/Resolved]

NARRATIVE: CASE EVENT DATE: 20190616
